FAERS Safety Report 17147748 (Version 2)
Quarter: 2020Q1

REPORT INFORMATION
  Report Type: Spontaneous
  Country: US (occurrence: US)
  Receive Date: 20191212
  Receipt Date: 20200110
  Transmission Date: 20200409
  Serious: Yes (Hospitalization, Other)
  Sender: FDA-Public Use
  Company Number: US-ELI_LILLY_AND_COMPANY-US201912000473

PATIENT
  Age: 42 Year
  Sex: Male
  Weight: 70.3 kg

DRUGS (23)
  1. TADALAFIL. [Suspect]
     Active Substance: TADALAFIL
     Indication: PULMONARY ARTERIAL HYPERTENSION
     Dosage: 40 MG, DAILY
     Route: 065
  2. AMBRISENTAN [Suspect]
     Active Substance: AMBRISENTAN
     Indication: PULMONARY ARTERIAL HYPERTENSION
     Dosage: 10 MG, DAILY
     Route: 048
     Dates: start: 2019
  3. TRAZODONE HYDROCHLORIDE. [Concomitant]
     Active Substance: TRAZODONE HYDROCHLORIDE
     Dosage: 150 MG, EACH EVENING
     Route: 065
  4. TRAMADOL HCL [Concomitant]
     Active Substance: TRAMADOL HYDROCHLORIDE
     Indication: PAIN
     Dosage: UNK, UNKNOWN
     Route: 065
  5. SILDENAFIL CITRATE. [Concomitant]
     Active Substance: SILDENAFIL CITRATE
     Indication: PRODUCT USED FOR UNKNOWN INDICATION
     Dosage: UNK, UNKNOWN
     Route: 065
  6. TRAZODONE HYDROCHLORIDE. [Concomitant]
     Active Substance: TRAZODONE HYDROCHLORIDE
     Dosage: 1.5 DOSAGE FORM
     Route: 048
  7. BACITRACIN. [Concomitant]
     Active Substance: BACITRACIN
     Indication: SKIN LACERATION
     Dosage: UNK, UNKNOWN
     Route: 065
  8. HYDROMORPHONE HCL [Concomitant]
     Active Substance: HYDROMORPHONE HYDROCHLORIDE
     Dosage: 2 MG, EVERY 4 HRS
     Route: 048
  9. MELATONIN [Concomitant]
     Active Substance: MELATONIN
     Indication: INSOMNIA
     Dosage: UNK, UNKNOWN
     Route: 065
  10. TRAZODONE HYDROCHLORIDE. [Concomitant]
     Active Substance: TRAZODONE HYDROCHLORIDE
     Indication: INSOMNIA
     Dosage: UNK, UNKNOWN
     Route: 065
  11. TRAMADOL HCL [Concomitant]
     Active Substance: TRAMADOL HYDROCHLORIDE
     Dosage: UNK, EVERY 4 HRS
  12. TRAMADOL HCL [Concomitant]
     Active Substance: TRAMADOL HYDROCHLORIDE
     Dosage: 50 MG
     Route: 048
  13. HYDROMORPHONE HCL [Concomitant]
     Active Substance: HYDROMORPHONE HYDROCHLORIDE
     Indication: PAIN
     Dosage: UNK, UNKNOWN
     Route: 065
  14. HYDROMORPHONE HCL [Concomitant]
     Active Substance: HYDROMORPHONE HYDROCHLORIDE
     Dosage: UNK, TID
     Route: 065
  15. REGULAR INSULIN NOVO NORDISK [Concomitant]
     Active Substance: INSULIN HUMAN
     Indication: PRODUCT USED FOR UNKNOWN INDICATION
     Dosage: 7 INTERNATIONAL UNIT, OTHER
     Route: 065
  16. PANTOPRAZOLE [Concomitant]
     Active Substance: PANTOPRAZOLE
     Indication: PRODUCT USED FOR UNKNOWN INDICATION
     Dosage: UNK, UNKNOWN
     Route: 065
  17. RANITIDINE. [Concomitant]
     Active Substance: RANITIDINE
     Indication: PRODUCT USED FOR UNKNOWN INDICATION
     Dosage: UNK, UNKNOWN
     Route: 065
  18. BUSPIRONE HCL [Concomitant]
     Active Substance: BUSPIRONE HYDROCHLORIDE
     Indication: ANXIETY
     Dosage: 10 MG, UNKNOWN
  19. MELATONIN [Concomitant]
     Active Substance: MELATONIN
     Dosage: 10 MG, EACH EVENING
     Route: 065
  20. TADALAFIL. [Suspect]
     Active Substance: TADALAFIL
     Dosage: 20 MG, DAILY
     Route: 065
     Dates: end: 2019
  21. BUSPIRONE HCL [Concomitant]
     Active Substance: BUSPIRONE HYDROCHLORIDE
     Dosage: 10 MG, TID
     Route: 048
  22. LEVEMIR [Concomitant]
     Active Substance: INSULIN DETEMIR
     Indication: TYPE 2 DIABETES MELLITUS
     Dosage: 15 INTERNATIONAL UNIT, BID
     Route: 058
  23. BUSPIRONE HCL [Concomitant]
     Active Substance: BUSPIRONE HYDROCHLORIDE
     Indication: AFFECT LABILITY
     Dosage: 5 MG, TID
     Route: 065

REACTIONS (34)
  - Ankle fracture [Recovering/Resolving]
  - Nasal congestion [Not Recovered/Not Resolved]
  - Haemoglobin decreased [Unknown]
  - Facial bones fracture [Recovering/Resolving]
  - Muscle atrophy [Not Recovered/Not Resolved]
  - Limb injury [Not Recovered/Not Resolved]
  - Nasopharyngitis [Unknown]
  - Insomnia [Unknown]
  - Affect lability [Unknown]
  - Tibia fracture [Recovering/Resolving]
  - Fibula fracture [Recovering/Resolving]
  - Blood calcium decreased [Unknown]
  - Craniocerebral injury [Unknown]
  - Decreased appetite [Not Recovered/Not Resolved]
  - Hypophagia [Not Recovered/Not Resolved]
  - Gastrooesophageal reflux disease [Unknown]
  - Red blood cell count decreased [Unknown]
  - Loss of consciousness [Unknown]
  - Pain [Unknown]
  - Fatigue [Unknown]
  - Constipation [Unknown]
  - Glycosylated haemoglobin increased [Unknown]
  - Weight decreased [Not Recovered/Not Resolved]
  - Tunnel vision [Not Recovered/Not Resolved]
  - Road traffic accident [Recovered/Resolved]
  - Femur fracture [Recovering/Resolving]
  - Loss of consciousness [Unknown]
  - Fall [Not Recovered/Not Resolved]
  - Skull fracture [Recovering/Resolving]
  - Hypotension [Unknown]
  - Neurogenic bladder [Unknown]
  - Anxiety [Unknown]
  - Haematocrit decreased [Unknown]
  - Mean platelet volume decreased [Unknown]

NARRATIVE: CASE EVENT DATE: 2019
